FAERS Safety Report 12865077 (Version 1)
Quarter: 2016Q4

REPORT INFORMATION
  Report Type: Spontaneous
  Country: CN (occurrence: CN)
  Receive Date: 20161020
  Receipt Date: 20161020
  Transmission Date: 20170207
  Serious: Yes (Other)
  Sender: FDA-Public Use
  Company Number: CN-CELGENEUS-CHN-2016101723

PATIENT

DRUGS (2)
  1. ABRAXANE [Suspect]
     Active Substance: PACLITAXEL
     Indication: NON-SMALL CELL LUNG CANCER
     Route: 050
  2. CARBOPLATIN. [Concomitant]
     Active Substance: CARBOPLATIN
     Indication: NON-SMALL CELL LUNG CANCER
     Route: 065

REACTIONS (7)
  - Metastasis [Unknown]
  - Mucosal inflammation [Unknown]
  - Radiation oesophagitis [Unknown]
  - Radiation pneumonitis [Unknown]
  - Malignant pleural effusion [Unknown]
  - Neutropenia [Unknown]
  - Non-small cell lung cancer recurrent [Unknown]
